FAERS Safety Report 9109134 (Version 1)
Quarter: 2013Q1

REPORT INFORMATION
  Report Type: Spontaneous
  Country: US (occurrence: US)
  Receive Date: 20130222
  Receipt Date: 20130222
  Transmission Date: 20140127
  Serious: Yes (Hospitalization, Other)
  Sender: FDA-Public Use
  Company Number: US-SANOFI-AVENTIS-2013SA015788

PATIENT
  Age: 70 Year
  Sex: Female

DRUGS (5)
  1. LANTUS SOLOSTAR [Suspect]
     Indication: TYPE 2 DIABETES MELLITUS
     Dosage: INCREASED HER INSULIN GLARGINE FROM 32 UNITS TO 45 UNITS DOSE:45 UNIT(S)
     Route: 051
  2. LANTUS SOLOSTAR [Suspect]
     Indication: TYPE 2 DIABETES MELLITUS
     Dosage: INCREASED HER INSULIN GLARGINE FROM 32 UNITS TO 45 UNITS DOSE:32 UNIT(S)
     Route: 051
     Dates: start: 2003
  3. SOLOSTAR [Suspect]
     Indication: TYPE 2 DIABETES MELLITUS
  4. INSULIN [Concomitant]
  5. PREDNISONE [Concomitant]

REACTIONS (2)
  - Pneumonia [Unknown]
  - Hyperglycaemia [Unknown]
